FAERS Safety Report 23487587 (Version 2)
Quarter: 2024Q1

REPORT INFORMATION
  Report Type: Report from Study
  Country: MY (occurrence: MY)
  Receive Date: 20240206
  Receipt Date: 20240223
  Transmission Date: 20240410
  Serious: Yes (Death, Other)
  Sender: FDA-Public Use
  Company Number: MY-TAKEDA-2024TUS010810

PATIENT
  Age: 57 Year
  Sex: Male
  Weight: 51 kg

DRUGS (7)
  1. IXAZOMIB [Suspect]
     Active Substance: IXAZOMIB
     Indication: Plasma cell myeloma refractory
     Dosage: 4 MILLIGRAM, 1/WEEK
     Route: 048
     Dates: start: 20231228, end: 20240111
  2. IXAZOMIB [Suspect]
     Active Substance: IXAZOMIB
     Indication: Plasmacytoma
  3. FENTANYL [Concomitant]
     Active Substance: FENTANYL\FENTANYL CITRATE
     Indication: Pain
     Dosage: 12 MICROGRAM
     Route: 065
     Dates: start: 20240124, end: 20240127
  4. MORPHINE [Concomitant]
     Active Substance: MORPHINE
     Indication: Dyspnoea
     Dosage: 5 MILLIGRAM
     Route: 058
     Dates: start: 20240126, end: 20240127
  5. GABAPENTIN [Concomitant]
     Active Substance: GABAPENTIN
     Indication: Pain
     Dosage: 300 MILLIGRAM, TID
     Route: 048
     Dates: start: 20240118, end: 20240126
  6. LACTULOSE [Concomitant]
     Active Substance: LACTULOSE
     Indication: Constipation
     Dosage: 20 MILLILITER, TID
     Route: 065
     Dates: start: 20240117, end: 20240126
  7. CALCITONIN [Concomitant]
     Active Substance: CALCITONIN
     Indication: Hypercalcaemia
     Dosage: 200 MILLIGRAM, BID
     Route: 065
     Dates: start: 20240118, end: 20240121

REACTIONS (1)
  - Plasma cell myeloma [Fatal]

NARRATIVE: CASE EVENT DATE: 20240127
